FAERS Safety Report 5654850-4 (Version None)
Quarter: 2008Q1

REPORT INFORMATION
  Report Type: 
  Country: None (occurrence: None)
  Receive Date: 20080307
  Receipt Date: 20070831
  Transmission Date: 20080703
  Serious: No
  Sender: FDA-Public Use
  Company Number: A0669232A

PATIENT
  Age: 50 Year
  Sex: Female

DRUGS (2)
  1. REQUIP [Suspect]
     Indication: PARKINSON'S DISEASE
     Dosage: 3MG SEE DOSAGE TEXT
     Route: 048
     Dates: start: 19950101, end: 20050101
  2. SINEMET [Suspect]

REACTIONS (3)
  - GAMBLING [None]
  - MENTAL IMPAIRMENT [None]
  - OBSESSIVE-COMPULSIVE DISORDER [None]
